FAERS Safety Report 8205357-1 (Version None)
Quarter: 2012Q1

REPORT INFORMATION
  Report Type: 
  Country: None (occurrence: None)
  Receive Date: 20120313
  Receipt Date: 20120302
  Transmission Date: 20120608
  Serious: Yes (Other)
  Sender: FDA-Public Use
  Company Number: US-JNJFOC-20120302473

PATIENT
  Sex: Female
  Weight: 72.58 kg

DRUGS (10)
  1. METRONIDAZOLE [Concomitant]
     Route: 048
     Dates: start: 20120222
  2. NEXIUM [Concomitant]
     Indication: GASTROOESOPHAGEAL REFLUX DISEASE
     Route: 048
     Dates: start: 20080101
  3. CALCIUM [Concomitant]
     Indication: MEDICAL DIET
     Route: 048
     Dates: start: 20111001, end: 20120101
  4. TYLENOL [Concomitant]
     Indication: PREMEDICATION
     Route: 065
  5. REMICADE [Suspect]
     Indication: CROHN'S DISEASE
     Route: 042
     Dates: start: 20120227
  6. VITAMIN D [Concomitant]
     Indication: MEDICAL DIET
     Route: 048
     Dates: start: 20111001
  7. HYDROCHLOROTHIAZIDE [Concomitant]
     Indication: HYPERTENSION
     Route: 048
     Dates: start: 20090101
  8. REMICADE [Suspect]
     Indication: ANKYLOSING SPONDYLITIS
     Route: 042
     Dates: start: 20120227
  9. BENADRYL [Concomitant]
     Indication: PREMEDICATION
     Route: 065
  10. CIPRO [Concomitant]
     Route: 048
     Dates: start: 20120222

REACTIONS (9)
  - PALPITATIONS [None]
  - PARAESTHESIA [None]
  - TREMOR [None]
  - SKIN DISCOLOURATION [None]
  - FEELING ABNORMAL [None]
  - RASH [None]
  - MUSCULAR WEAKNESS [None]
  - DIZZINESS [None]
  - SYNCOPE [None]
